FAERS Safety Report 6583940-7 (Version None)
Quarter: 2010Q1

REPORT INFORMATION
  Report Type: 
  Country: None (occurrence: None)
  Receive Date: 20100213
  Receipt Date: 20100213
  Transmission Date: 20100710
  Serious: No
  Sender: FDA-Public Use
  Company Number: None

PATIENT
  Sex: Female

DRUGS (2)
  1. PEGASYS [Suspect]
     Indication: HEPATITIS C
     Dosage: 180 MCG/0.5.ML WEEKLY SQ
     Route: 058
     Dates: start: 20091211, end: 20100114
  2. RIBAVIRIN [Suspect]
     Indication: HEPATITIS C
     Dosage: 600 MG-AM/600 MG-PM DIB PO
     Route: 048
     Dates: start: 20091211, end: 20100114

REACTIONS (2)
  - MYOCARDIAL INFARCTION [None]
  - PAIN IN EXTREMITY [None]
